FAERS Safety Report 8921185 (Version 3)
Quarter: 2013Q1

REPORT INFORMATION
  Report Type: Spontaneous
  Country: JP (occurrence: JP)
  Receive Date: 20121121
  Receipt Date: 20130104
  Transmission Date: 20140127
  Serious: Yes (Hospitalization)
  Sender: FDA-Public Use
  Company Number: JP-ASTRAZENECA-2012SE87635

PATIENT
  Age: 38 Year
  Sex: Female
  Weight: 62 kg

DRUGS (3)
  1. ZOLADEX [Suspect]
     Indication: BREAST CANCER
     Route: 058
     Dates: start: 20120514, end: 20120928
  2. PACLITAXEL [Concomitant]
     Indication: BREAST CANCER
     Dosage: DOSE UNKNOWN, 12 DOSES IN TOTAL ONCE A WEEK
     Route: 041
     Dates: start: 20120210, end: 20120602
  3. SEFTAC [Concomitant]

REACTIONS (5)
  - Cholestasis [Recovering/Resolving]
  - Diarrhoea [Recovering/Resolving]
  - Oropharyngeal pain [Unknown]
  - Nausea [Unknown]
  - Malaise [Unknown]
